FAERS Safety Report 11304819 (Version 2)
Quarter: 2015Q3

REPORT INFORMATION
  Report Type: Spontaneous
  Country: FR (occurrence: FR)
  Receive Date: 20150723
  Receipt Date: 20150805
  Transmission Date: 20151125
  Serious: Yes (Life-Threatening, Hospitalization)
  Sender: FDA-Public Use
  Company Number: FR-PFIZER INC-2015240702

PATIENT
  Sex: Female
  Weight: 1.94 kg

DRUGS (8)
  1. CREON [Suspect]
     Active Substance: PANCRELIPASE AMYLASE\PANCRELIPASE LIPASE\PANCRELIPASE PROTEASE
     Dosage: UNK
     Route: 064
  2. TOCO 500 [Suspect]
     Active Substance: .ALPHA.-TOCOPHEROL
     Dosage: UNK
     Route: 064
  3. SPORANOX [Suspect]
     Active Substance: ITRACONAZOLE\SODIUM CHLORIDE
     Dosage: 500 MG, DAILY
     Route: 064
  4. PULMOZYME [Suspect]
     Active Substance: DORNASE ALFA
     Dosage: UNK
     Route: 064
  5. AUGMENTIN [Suspect]
     Active Substance: AMOXICILLIN\CLAVULANATE POTASSIUM
     Dosage: UNK
     Route: 064
  6. VFEND [Suspect]
     Active Substance: VORICONAZOLE
     Dosage: UNK
     Route: 064
  7. VITAMINE A [Suspect]
     Active Substance: RETINOL
     Dosage: UNK
     Route: 064
  8. UVEDOSE [Suspect]
     Active Substance: CHOLECALCIFEROL
     Dosage: 1 VIAL EVERY 3-4 MONTHS
     Route: 064

REACTIONS (5)
  - Inappropriate antidiuretic hormone secretion [Recovered/Resolved]
  - Intraventricular haemorrhage [Unknown]
  - Intestinal perforation [Recovered/Resolved]
  - Premature baby [Unknown]
  - Maternal exposure during pregnancy [Unknown]

NARRATIVE: CASE EVENT DATE: 2013
